FAERS Safety Report 5570590-4 (Version None)
Quarter: 2007Q4

REPORT INFORMATION
  Report Type: 
  Country: None (occurrence: None)
  Receive Date: 20071221
  Receipt Date: 20071210
  Transmission Date: 20080405
  Serious: Yes (Hospitalization)
  Sender: FDA-Public Use
  Company Number: US-NOVOPROD-270325

PATIENT
  Age: 55 Year
  Sex: Female
  Weight: 110 kg

DRUGS (16)
  1. NOVOLIN N [Suspect]
     Indication: INSULIN-REQUIRING TYPE II DIABETES MELLITUS
     Dosage: SLIDING SCALE
     Route: 042
  2. NOVOLIN N [Suspect]
     Dosage: 120 IU, QD
     Route: 058
  3. INSULIN LISPRO [Suspect]
     Indication: INSULIN-REQUIRING TYPE II DIABETES MELLITUS
     Dosage: SLIDING SCALE
  4. NOVOLOG [Suspect]
     Indication: INSULIN-REQUIRING TYPE II DIABETES MELLITUS
     Route: 042
  5. PREDNISONE [Concomitant]
     Dosage: 60 MG, QD
  6. PREDNISONE [Concomitant]
     Dosage: 10 MG, UNK
  7. ATENOLOL [Concomitant]
  8. FUROSEMIDE [Concomitant]
  9. LEVOTHYROXINE SODIUM [Concomitant]
  10. SIMVASTATIN [Concomitant]
  11. METOCLOPRAMIDE [Concomitant]
  12. ALLOPURINOL [Concomitant]
  13. MORPHINE SULFATE [Concomitant]
  14. ASPIRIN [Concomitant]
  15. NEPRO [Concomitant]
     Dosage: ENTERAL FEEDING VIA A NASOGASTRIC TUBE
  16. OXYGEN [Concomitant]

REACTIONS (5)
  - ACUTE RESPIRATORY FAILURE [None]
  - ANTI-INSULIN ANTIBODY INCREASED [None]
  - HYPERGLYCAEMIA [None]
  - INSULIN RESISTANCE [None]
  - RENAL FAILURE ACUTE [None]
